FAERS Safety Report 18341177 (Version 1)
Quarter: 2020Q4

REPORT INFORMATION
  Report Type: Spontaneous
  Country: PL (occurrence: PL)
  Receive Date: 20201003
  Receipt Date: 20201003
  Transmission Date: 20210113
  Serious: Yes (Other)
  Sender: FDA-Public Use
  Company Number: PL-TEVA-2020-PL-1833676

PATIENT
  Age: 40 Year
  Sex: Male
  Weight: 72 kg

DRUGS (2)
  1. NAKLOFEN [Concomitant]
     Active Substance: DICLOFENAC SODIUM
  2. GABAPENTIN TEVA [Suspect]
     Active Substance: GABAPENTIN
     Route: 065

REACTIONS (1)
  - Tongue oedema [Recovering/Resolving]
